FAERS Safety Report 12781018 (Version 1)
Quarter: 2016Q3

REPORT INFORMATION
  Report Type: Spontaneous
  Country: None (occurrence: BR)
  Receive Date: 20160926
  Receipt Date: 20160926
  Transmission Date: 20161109
  Serious: Yes (Other)
  Sender: FDA-Public Use
  Company Number: BR-MERCK KGAA-1057703

PATIENT

DRUGS (1)
  1. NOVOTHYROX [Suspect]
     Active Substance: LEVOTHYROXINE SODIUM

REACTIONS (7)
  - Visual impairment [None]
  - Ulcer [None]
  - Product distribution issue [None]
  - Weight decreased [None]
  - Drug dose omission [None]
  - Depression [None]
  - Thyroid function test abnormal [None]
